FAERS Safety Report 4314752-2 (Version None)
Quarter: 2004Q1

REPORT INFORMATION
  Report Type: 
  Country: None (occurrence: None)
  Receive Date: 20040308
  Receipt Date: 20040224
  Transmission Date: 20041129
  Serious: Yes (Hospitalization)
  Sender: FDA-Public Use
  Company Number: DE-JNJFOC-20040103637

PATIENT
  Age: 71 Year
  Sex: Female
  Weight: 85 kg

DRUGS (5)
  1. TOPAMAX [Suspect]
     Indication: EPILEPSY
     Dosage: SEE IMAGE
     Route: 048
     Dates: start: 20031101, end: 20031101
  2. TOPAMAX [Suspect]
     Indication: EPILEPSY
     Dosage: SEE IMAGE
     Route: 048
     Dates: start: 20031101, end: 20031223
  3. TOPAMAX [Suspect]
     Indication: EPILEPSY
     Dosage: SEE IMAGE
     Route: 048
     Dates: start: 20031224, end: 20040118
  4. TOPAMAX [Suspect]
     Indication: EPILEPSY
     Dosage: SEE IMAGE
     Route: 048
     Dates: start: 20040118
  5. PHENYDAN (ZENTRONAL) UNKNOWN [Suspect]
     Indication: EPILEPSY
     Dosage: 300 MG, IN 1 DAY, ORAL
     Route: 048
     Dates: start: 20031101, end: 20040128

REACTIONS (7)
  - ANTICONVULSANT DRUG LEVEL DECREASED [None]
  - APATHY [None]
  - ASTHENIA [None]
  - DRUG INTERACTION [None]
  - EPILEPSY [None]
  - GLIOBLASTOMA [None]
  - MALIGNANT NEOPLASM PROGRESSION [None]
